FAERS Safety Report 5304191-X (Version None)
Quarter: 2007Q2

REPORT INFORMATION
  Report Type: 
  Country: None (occurrence: None)
  Receive Date: 20070423
  Receipt Date: 20070412
  Transmission Date: 20071010
  Serious: Yes (Hospitalization, Other)
  Sender: FDA-Public Use
  Company Number: PHBS2007ES01647

PATIENT
  Age: 78 Year
  Sex: Male

DRUGS (5)
  1. CORTICOSTEROIDS [Concomitant]
     Route: 065
  2. ZOMETA [Suspect]
     Indication: METASTASES TO BONE
     Dosage: UNK, UNK
     Route: 065
     Dates: start: 20060901
  3. CALCIUM [Concomitant]
     Dates: start: 20060901
  4. PECTOX [Concomitant]
     Dates: start: 20060901
  5. TRANKIMAZIN [Concomitant]

REACTIONS (22)
  - BLOOD CREATININE INCREASED [None]
  - CARDIOMEGALY [None]
  - CELLULITIS [None]
  - CUTANEOUS VASCULITIS [None]
  - DIARRHOEA HAEMORRHAGIC [None]
  - DIVERTICULUM INTESTINAL [None]
  - ERYTHEMA [None]
  - FACE OEDEMA [None]
  - GASTROINTESTINAL OEDEMA [None]
  - HAEMATOCRIT DECREASED [None]
  - HAEMORRHAGE SUBCUTANEOUS [None]
  - HYPERTENSIVE CRISIS [None]
  - NASOPHARYNGITIS [None]
  - NEPHROTIC SYNDROME [None]
  - OEDEMA [None]
  - OEDEMA PERIPHERAL [None]
  - PLATELET COUNT DECREASED [None]
  - PROTEIN URINE [None]
  - RECTAL HAEMORRHAGE [None]
  - RED BLOOD CELL COUNT DECREASED [None]
  - VASCULITIS [None]
  - WEIGHT INCREASED [None]
